FAERS Safety Report 21222743 (Version 1)
Quarter: 2022Q3

REPORT INFORMATION
  Report Type: Report from Study
  Country: US (occurrence: US)
  Receive Date: 20220817
  Receipt Date: 20220817
  Transmission Date: 20221026
  Serious: Yes (Hospitalization, Other)
  Sender: FDA-Public Use
  Company Number: US-KADMON-US-KAD-22-00753

PATIENT
  Sex: Male

DRUGS (1)
  1. BELUMOSUDIL [Suspect]
     Active Substance: BELUMOSUDIL
     Indication: Product used for unknown indication
     Dosage: 200 MILLIGRAM, QD, WITH A FULL GLASS OF WATER
     Route: 048
     Dates: start: 20211015

REACTIONS (3)
  - Wound [Unknown]
  - Emotional distress [Unknown]
  - Product dose omission issue [Unknown]
